FAERS Safety Report 4824485-1 (Version None)
Quarter: 2005Q4

REPORT INFORMATION
  Report Type: 
  Country: None (occurrence: None)
  Receive Date: 20051108
  Receipt Date: 20051020
  Transmission Date: 20060501
  Serious: Yes (Hospitalization, Disabling)
  Sender: FDA-Public Use
  Company Number: DE_051017271

PATIENT
  Age: 65 Year
  Sex: Male
  Weight: 72 kg

DRUGS (2)
  1. GEMZAR [Suspect]
     Indication: PANCREATIC CARCINOMA
     Dosage: 1825 MG
     Dates: start: 20040527, end: 20051020
  2. MCP (METOCLOPRAMIDE HYDROCHLORIDE) [Concomitant]

REACTIONS (1)
  - DEMENTIA [None]
